FAERS Safety Report 13064802 (Version 1)
Quarter: 2016Q4

REPORT INFORMATION
  Report Type: Spontaneous
  Country: US (occurrence: US)
  Receive Date: 20161223
  Receipt Date: 20161223
  Transmission Date: 20170207
  Serious: No
  Sender: FDA-Public Use
  Company Number: None

PATIENT
  Age: 67 Year
  Sex: Female

DRUGS (1)
  1. CAPECITABINE 500MG ACCORD [Suspect]
     Active Substance: CAPECITABINE
     Dosage: 1500MG TWICE A DAY FOR 1 WEEK ON AND  BY MOUTH
     Route: 048
     Dates: start: 20161102, end: 20161221

REACTIONS (1)
  - Skin discolouration [None]

NARRATIVE: CASE EVENT DATE: 20161221
